FAERS Safety Report 15008779 (Version 1)
Quarter: 2018Q2

REPORT INFORMATION
  Report Type: Spontaneous
  Country: US (occurrence: US)
  Receive Date: 20180521
  Receipt Date: 20180521
  Transmission Date: 20180711
  Serious: Yes (Hospitalization)
  Sender: FDA-Public Use
  Company Number: None

PATIENT
  Age: 68 Year
  Sex: Male

DRUGS (11)
  1. METOPROLOL TARTRATE. [Concomitant]
     Active Substance: METOPROLOL TARTRATE
  2. PREDNISONE. [Concomitant]
     Active Substance: PREDNISONE
  3. GLIPIZIDE. [Concomitant]
     Active Substance: GLIPIZIDE
  4. DICLOFENAC [Suspect]
     Active Substance: DICLOFENAC
     Indication: PAIN
     Route: 061
     Dates: start: 20170801, end: 20180115
  5. MULTIVITAMIN [Concomitant]
     Active Substance: VITAMINS
  6. SULFAMETHOXAZOLE/TRIMETHOPRIM [Concomitant]
     Active Substance: SULFAMETHOXAZOLE\TRIMETHOPRIM
  7. AMLODIPINE [Concomitant]
     Active Substance: AMLODIPINE BESYLATE
  8. ACYCLOVIR. [Concomitant]
     Active Substance: ACYCLOVIR
  9. FLUCONAZOLE. [Concomitant]
     Active Substance: FLUCONAZOLE
  10. INSULIN ASPART [Concomitant]
     Active Substance: INSULIN ASPART
  11. METFORMIN [Concomitant]
     Active Substance: METFORMIN HYDROCHLORIDE

REACTIONS (12)
  - Haemoglobin decreased [None]
  - Coombs direct test positive [None]
  - Musculoskeletal pain [None]
  - Reticulocyte count increased [None]
  - Hyperbilirubinaemia [None]
  - Dizziness [None]
  - Blood lactate dehydrogenase increased [None]
  - Autoimmune haemolytic anaemia [None]
  - Condition aggravated [None]
  - Dyspnoea [None]
  - Tachycardia [None]
  - Arthralgia [None]

NARRATIVE: CASE EVENT DATE: 20180115
